FAERS Safety Report 9832071 (Version 2)
Quarter: 2014Q1

REPORT INFORMATION
  Report Type: Report from Study
  Country: CA (occurrence: CA)
  Receive Date: 20140121
  Receipt Date: 20140121
  Transmission Date: 20141002
  Serious: Yes (Other)
  Sender: FDA-Public Use
  Company Number: PHHY2013CA155128

PATIENT
  Age: 28 Year
  Sex: Male

DRUGS (6)
  1. CLOZARIL (CLOZAPINE) [Suspect]
     Indication: SCHIZOPHRENIA
     Dosage: UNK UKN, UNK
     Route: 048
     Dates: start: 20130506, end: 20130619
  2. CLOZARIL (CLOZAPINE) [Suspect]
     Dosage: 25 MG, QHS
     Route: 048
     Dates: start: 20130924, end: 20131209
  3. FERROUS FUMARATE [Concomitant]
     Dosage: 300 MG, UNK
  4. PALIPERIDONE PALMITATE [Concomitant]
     Dosage: 150 MG, MONTHLY
     Route: 030
  5. PANTOPRAZOLE [Concomitant]
     Dosage: 40 MG, QD
  6. MULTIVITAMIN//VITAMINS NOS [Concomitant]
     Dosage: UNK UKN, UNK

REACTIONS (3)
  - Fall [Recovered/Resolved]
  - Hypotension [Recovered/Resolved]
  - Tachycardia [Recovered/Resolved]
